FAERS Safety Report 8247351-0 (Version None)
Quarter: 2012Q1

REPORT INFORMATION
  Report Type: 
  Country: None (occurrence: None)
  Receive Date: 20120328
  Receipt Date: 20120328
  Transmission Date: 20120608
  Serious: No
  Sender: FDA-Public Use
  Company Number: None

PATIENT
  Age: 40 Year
  Sex: Female

DRUGS (1)
  1. NITROFURANTOIN [Suspect]
     Dates: start: 20091101, end: 20091101

REACTIONS (15)
  - CHROMATURIA [None]
  - VOMITING [None]
  - DECREASED APPETITE [None]
  - CHILLS [None]
  - HAIR TEXTURE ABNORMAL [None]
  - DRY SKIN [None]
  - NAUSEA [None]
  - ALOPECIA [None]
  - ARTHRALGIA [None]
  - CHOLESTASIS [None]
  - FATIGUE [None]
  - JAUNDICE [None]
  - HEPATITIS [None]
  - OEDEMA [None]
  - PRURITUS [None]
